FAERS Safety Report 24351973 (Version 1)
Quarter: 2024Q3

REPORT INFORMATION
  Report Type: Spontaneous
  Country: CH (occurrence: CH)
  Receive Date: 20240923
  Receipt Date: 20240923
  Transmission Date: 20241017
  Serious: Yes (Hospitalization, Other)
  Sender: FRESENIUS KABI
  Company Number: CH-FreseniusKabi-FK202414090

PATIENT
  Age: 61 Year
  Sex: Female

DRUGS (8)
  1. ETOPOSIDE [Suspect]
     Active Substance: ETOPOSIDE
     Indication: Small cell lung cancer
     Dosage: 100 MG/M2 (DOSE PROTOCOL 190 MG).
     Dates: start: 201911
  2. ETOPOSIDE [Suspect]
     Active Substance: ETOPOSIDE
     Indication: Metastases to central nervous system
     Dosage: WITH A TOTAL DAILY DOSE OF ETOPOSIDE PHOSPHATE?OF 100 MG (50 MG/M2) PER DAY FOR 3 SUCCESSIVE DAYS.?S
  3. CISPLATIN [Concomitant]
     Active Substance: CISPLATIN
     Indication: Small cell lung cancer
     Dosage: 25 MG/M2 (DOSE PROTOCOL 45 MG)
     Dates: start: 201911
  4. CISPLATIN [Concomitant]
     Active Substance: CISPLATIN
     Indication: Metastases to central nervous system
     Dosage: 25 MG/M2 (DOSE PROTOCOL 45 MG)
     Dates: start: 201911
  5. CARBOPLATIN [Concomitant]
     Active Substance: CARBOPLATIN
     Indication: Small cell lung cancer
     Dates: start: 202001
  6. CARBOPLATIN [Concomitant]
     Active Substance: CARBOPLATIN
     Indication: Metastases to central nervous system
     Dates: start: 202001
  7. IRINOTECAN [Concomitant]
     Active Substance: IRINOTECAN
     Indication: Small cell lung cancer
     Dates: start: 202001
  8. IRINOTECAN [Concomitant]
     Active Substance: IRINOTECAN
     Indication: Metastases to central nervous system
     Dates: start: 202001

REACTIONS (2)
  - Anaphylactic shock [Unknown]
  - Haematotoxicity [Unknown]
